FAERS Safety Report 7926418-8 (Version None)
Quarter: 2011Q4

REPORT INFORMATION
  Report Type: 
  Country: None (occurrence: None)
  Receive Date: 20111118
  Receipt Date: 20111109
  Transmission Date: 20120403
  Serious: No
  Sender: FDA-Public Use
  Company Number: US-BIOGENIDEC-2011BI042946

PATIENT
  Age: 43 Year
  Sex: Female

DRUGS (2)
  1. TYSABRI [Suspect]
     Indication: MULTIPLE SCLEROSIS
     Route: 042
     Dates: start: 20091217
  2. TYSABRI [Suspect]
     Route: 042
     Dates: start: 20080108, end: 20091028

REACTIONS (3)
  - ASTHENIA [None]
  - VISUAL IMPAIRMENT [None]
  - FREQUENT BOWEL MOVEMENTS [None]
